FAERS Safety Report 7610250-9 (Version None)
Quarter: 2011Q3

REPORT INFORMATION
  Report Type: 
  Country: None (occurrence: None)
  Receive Date: 20110706
  Receipt Date: 20110624
  Transmission Date: 20111222
  Serious: Yes (Hospitalization)
  Sender: FDA-Public Use
  Company Number: 2011SP029610

PATIENT
  Age: 47 Year
  Sex: Male

DRUGS (7)
  1. DIOVAN [Concomitant]
  2. FERROUS CITRATE [Concomitant]
  3. CYMBALTA [Suspect]
     Indication: DEPRESSION
     Dosage: 40 MG, QD, PO
     Route: 048
     Dates: start: 20110513, end: 20110526
  4. ALPRAZOLAM [Concomitant]
  5. LIPITOR [Concomitant]
  6. ZONISAMIDE [Concomitant]
  7. BETAMETHASONE [Suspect]
     Indication: PEMPHIGUS
     Dosage: 1 MG, QD, PO
     Route: 048

REACTIONS (1)
  - INAPPROPRIATE ANTIDIURETIC HORMONE SECRETION [None]
